FAERS Safety Report 10110274 (Version 1)
Quarter: 2014Q2

REPORT INFORMATION
  Report Type: Spontaneous
  Country: US (occurrence: US)
  Receive Date: 20140425
  Receipt Date: 20140425
  Transmission Date: 20141212
  Serious: Yes (Other)
  Sender: FDA-Public Use
  Company Number: US-SHIRE-US201401510

PATIENT
  Sex: Male

DRUGS (1)
  1. VYVANSE [Suspect]
     Indication: PSYCHOMOTOR HYPERACTIVITY
     Dosage: UNK, 1X/DAY:QD
     Route: 048

REACTIONS (1)
  - Failure to thrive [Not Recovered/Not Resolved]
